FAERS Safety Report 9463545 (Version 5)
Quarter: 2013Q4

REPORT INFORMATION
  Report Type: Report from Study
  Country: US (occurrence: US)
  Receive Date: 20130819
  Receipt Date: 20131029
  Transmission Date: 20140711
  Serious: Yes (Hospitalization, Other)
  Sender: FDA-Public Use
  Company Number: US-AMGEN-USACT2013057196

PATIENT
  Age: 85 Year
  Sex: Female
  Weight: 54.55 kg

DRUGS (7)
  1. DARBEPOETIN ALFA [Suspect]
     Indication: NEPHROGENIC ANAEMIA
     Dosage: UNK
     Route: 065
     Dates: start: 20130617
  2. HYDROCHLOROTHIAZIDE [Concomitant]
     Dosage: 25 MG, QD
  3. GEMFIBROZIL [Concomitant]
     Dates: start: 20110314
  4. KAYEXALATE [Concomitant]
     Dosage: UNK
     Dates: start: 20130613
  5. ULORIC [Concomitant]
     Dosage: UNK
     Route: 048
     Dates: start: 20130319
  6. LEVOTHYROXINE [Concomitant]
     Dosage: UNK
     Route: 048
     Dates: start: 20110314
  7. SODIUM BICARBONATE [Concomitant]
     Dosage: UNK
     Dates: start: 20130131

REACTIONS (4)
  - Vomiting [Recovered/Resolved]
  - Diastolic hypertension [Recovered/Resolved]
  - Hyponatraemia [Not Recovered/Not Resolved]
  - Hypertension [Recovered/Resolved]
